FAERS Safety Report 20791712 (Version 1)
Quarter: 2022Q2

REPORT INFORMATION
  Report Type: Spontaneous
  Country: US (occurrence: None)
  Receive Date: 20220505
  Receipt Date: 20220505
  Transmission Date: 20220720
  Serious: No
  Sender: FDA-Public Use
  Company Number: None

PATIENT
  Sex: Male

DRUGS (1)
  1. SIMPONI [Suspect]
     Active Substance: GOLIMUMAB
     Indication: Ankylosing spondylitis
     Dosage: 50MG/0.5ML 1 PEN ONCE MONTHLY INJECTION
     Route: 030
     Dates: start: 20220217

REACTIONS (3)
  - Drug ineffective [None]
  - Pain [None]
  - Dysstasia [None]
